FAERS Safety Report 10454985 (Version 1)
Quarter: 2014Q3

REPORT INFORMATION
  Report Type: Report from Study
  Country: US (occurrence: US)
  Receive Date: 20140915
  Receipt Date: 20140915
  Transmission Date: 20150326
  Serious: Yes (Other)
  Sender: FDA-Public Use
  Company Number: US-ALEXION PHARMACEUTICALS INC-A200800752

PATIENT
  Sex: Female

DRUGS (1)
  1. SOLIRIS [Suspect]
     Active Substance: ECULIZUMAB
     Indication: PAROXYSMAL NOCTURNAL HAEMOGLOBINURIA

REACTIONS (11)
  - Transfusion [Unknown]
  - Dyspnoea [Recovered/Resolved]
  - Malaise [Recovering/Resolving]
  - Diarrhoea [Unknown]
  - Central venous catheterisation [Unknown]
  - Cardiac murmur [Unknown]
  - Neuritis [Unknown]
  - Pyrexia [Recovering/Resolving]
  - Fatigue [Unknown]
  - Asthenia [Unknown]
  - Haemoglobin decreased [Unknown]
